FAERS Safety Report 6149629-3 (Version None)
Quarter: 2009Q2

REPORT INFORMATION
  Report Type: 
  Country: None (occurrence: None)
  Receive Date: 20090407
  Receipt Date: 20090407
  Transmission Date: 20091009
  Serious: Yes (Hospitalization)
  Sender: FDA-Public Use
  Company Number: None

PATIENT
  Age: 45 Year
  Sex: Female
  Weight: 62.1428 kg

DRUGS (1)
  1. AVELOX [Suspect]
     Indication: SINUSITIS
     Dosage: 400 MG 1 TIME A DAY PO
     Route: 048
     Dates: start: 20020112, end: 20071127

REACTIONS (1)
  - DRUG HYPERSENSITIVITY [None]
